FAERS Safety Report 9875265 (Version 2)
Quarter: 2014Q1

REPORT INFORMATION
  Report Type: Spontaneous
  Country: US (occurrence: US)
  Receive Date: 20140206
  Receipt Date: 20140206
  Transmission Date: 20141002
  Serious: No
  Sender: FDA-Public Use
  Company Number: US-ACORDA-ACO_35484_2013

PATIENT
  Sex: Male

DRUGS (3)
  1. AMPYRA [Suspect]
     Indication: PRODUCT USED FOR UNKNOWN INDICATION
  2. TYSABRI [Concomitant]
     Indication: PRODUCT USED FOR UNKNOWN INDICATION
     Dosage: 300 MG, MONTHLY
     Dates: start: 20080707, end: 20100824
  3. TYSABRI [Concomitant]
     Dosage: 300 MG, MONTHLY
     Dates: start: 20110920, end: 20121206

REACTIONS (2)
  - Product quality issue [Unknown]
  - Drug ineffective [Unknown]
